FAERS Safety Report 7337984-8 (Version None)
Quarter: 2011Q1

REPORT INFORMATION
  Report Type: 
  Country: None (occurrence: None)
  Receive Date: 20110228
  Receipt Date: 20110217
  Transmission Date: 20110831
  Serious: Yes (Death)
  Sender: FDA-Public Use
  Company Number: AE11-031-6

PATIENT
  Age: 70 Year
  Sex: Female

DRUGS (18)
  1. MULTI-VITAMINS [Suspect]
  2. HYDROMORPHONE [Suspect]
  3. FLUOXETINE [Suspect]
  4. FOLIC ACID [Suspect]
  5. DESIPRAMINE [Suspect]
  6. CHLORDIAZEPOXIDE [Suspect]
  7. LISINOPRIL [Suspect]
  8. LOVASTATIN [Suspect]
  9. ACETAMINOPHEN/OXYCODONE [Suspect]
  10. CYCLOBENZAPRINE [Suspect]
  11. CLONAZEPAM [Suspect]
  12. PREGABALIN [Suspect]
  13. MELOXICAM [Concomitant]
  14. CALCIUM [Suspect]
  15. ACETAMINOPHEN [Suspect]
  16. TORSEMIDE [Suspect]
  17. METHADONE [Suspect]
  18. DULOXETINE [Suspect]

REACTIONS (3)
  - COMPLETED SUICIDE [None]
  - CARDIAC ARREST [None]
  - RESPIRATORY ARREST [None]
